FAERS Safety Report 7399618-6 (Version None)
Quarter: 2011Q2

REPORT INFORMATION
  Report Type: 
  Country: None (occurrence: None)
  Receive Date: 20110407
  Receipt Date: 20110228
  Transmission Date: 20111010
  Serious: Yes (Hospitalization)
  Sender: FDA-Public Use
  Company Number: US-BAYER-201038269NA

PATIENT
  Sex: Female
  Weight: 114.29 kg

DRUGS (10)
  1. YASMIN [Suspect]
     Indication: ACNE
     Dosage: UNK
     Route: 048
     Dates: start: 20050101, end: 20060101
  2. UNCODEABLE ^UNCLASSIFIABLE^ [Concomitant]
     Indication: DIABETES MELLITUS
  3. VICODIN [Concomitant]
     Indication: MULTIPLE SCLEROSIS
  4. LISINOPRIL [Concomitant]
  5. REBIF [Concomitant]
     Indication: MULTIPLE SCLEROSIS
  6. OXYCODONE HCL [Concomitant]
     Indication: MULTIPLE SCLEROSIS
  7. YAZ [Suspect]
     Indication: ACNE
     Route: 048
  8. OCELLA [Suspect]
  9. LEVOTHYROXINE SODIUM [Concomitant]
     Indication: THYROID DISORDER
  10. METFORMIN [Concomitant]
     Indication: DIABETES MELLITUS

REACTIONS (3)
  - DEEP VEIN THROMBOSIS [None]
  - THROMBOSIS [None]
  - OEDEMA PERIPHERAL [None]
